FAERS Safety Report 9741177 (Version 1)
Quarter: 2013Q4

REPORT INFORMATION
  Report Type: Spontaneous
  Country: DK (occurrence: FR)
  Receive Date: 20131209
  Receipt Date: 20131209
  Transmission Date: 20140711
  Serious: Yes (Hospitalization)
  Sender: FDA-Public Use
  Company Number: FR-FRI-1000051979

PATIENT
  Age: 18 Year
  Sex: Female

DRUGS (5)
  1. ESCITALOPRAM [Suspect]
     Indication: MAJOR DEPRESSION
     Dates: start: 201305
  2. CONTRAMAL [Suspect]
  3. EPITOMAX [Suspect]
     Indication: BULIMIA NERVOSA
  4. TERCIAN [Suspect]
     Dosage: 15 DROPS ONCE
  5. MODIODAL [Concomitant]

REACTIONS (5)
  - Hallucination [Unknown]
  - Brief psychotic disorder with marked stressors [Unknown]
  - Major depression [Unknown]
  - Petit mal epilepsy [Unknown]
  - Chest pain [Unknown]
